FAERS Safety Report 14511296 (Version 4)
Quarter: 2018Q1

REPORT INFORMATION
  Report Type: Spontaneous
  Country: US (occurrence: US)
  Receive Date: 20180209
  Receipt Date: 20180323
  Transmission Date: 20180509
  Serious: Yes (Other)
  Sender: FDA-Public Use
  Company Number: US-GLAXOSMITHKLINE-US2018GSK021451

PATIENT
  Sex: Female
  Weight: 78.5 kg

DRUGS (5)
  1. TANZEUM [Suspect]
     Active Substance: ALBIGLUTIDE
     Dosage: UNK
  2. TANZEUM [Suspect]
     Active Substance: ALBIGLUTIDE
     Dosage: UNK
  3. TANZEUM [Suspect]
     Active Substance: ALBIGLUTIDE
     Dosage: UNK
  4. TANZEUM [Suspect]
     Active Substance: ALBIGLUTIDE
     Indication: TYPE 2 DIABETES MELLITUS
     Dosage: 50 MG, UNK
     Route: 042
     Dates: start: 201702
  5. TANZEUM [Suspect]
     Active Substance: ALBIGLUTIDE
     Dosage: UNK

REACTIONS (6)
  - Accidental exposure to product [Unknown]
  - Device malfunction [Unknown]
  - Wrong technique in device usage process [Unknown]
  - Exposure via skin contact [Unknown]
  - Medication error [Unknown]
  - Diabetes mellitus inadequate control [Unknown]
